FAERS Safety Report 16696980 (Version 4)
Quarter: 2019Q4

REPORT INFORMATION
  Report Type: Spontaneous
  Country: US (occurrence: US)
  Receive Date: 20190813
  Receipt Date: 20191226
  Transmission Date: 20200122
  Serious: No
  Sender: FDA-Public Use
  Company Number: US-PFIZER INC-2019341415

PATIENT
  Age: 81 Year
  Sex: Female
  Weight: 77 kg

DRUGS (5)
  1. OXYCODONE [Concomitant]
     Active Substance: OXYCODONE
     Dosage: 15 MG, 3X/DAY
  2. XELJANZ XR [Suspect]
     Active Substance: TOFACITINIB CITRATE
     Indication: RHEUMATOID ARTHRITIS
     Dosage: 11 MG, DAILY
     Dates: start: 2018
  3. LEUCOVORIN CALCIUM. [Concomitant]
     Active Substance: LEUCOVORIN CALCIUM
     Dosage: 5 MG, DAILY
  4. METHOTREXATE. [Concomitant]
     Active Substance: METHOTREXATE
     Dosage: 15 MG, WEEKLY (ONCE A WEEK 6 PILLS WITH EACH 2.5MG)
  5. PREDNISONE. [Concomitant]
     Active Substance: PREDNISONE
     Dosage: 5 MG, DAILY

REACTIONS (7)
  - Urinary tract infection [Not Recovered/Not Resolved]
  - Bronchitis [Unknown]
  - Hot flush [Not Recovered/Not Resolved]
  - Malaise [Unknown]
  - Chills [Not Recovered/Not Resolved]
  - Incontinence [Not Recovered/Not Resolved]
  - Pruritus [Unknown]
